FAERS Safety Report 5810828-9 (Version None)
Quarter: 2008Q3

REPORT INFORMATION
  Report Type: 
  Country: None (occurrence: None)
  Receive Date: 20080710
  Receipt Date: 20080625
  Transmission Date: 20090109
  Serious: Yes (Other)
  Sender: FDA-Public Use
  Company Number: 2008S1011297

PATIENT

DRUGS (13)
  1. FENTANYL TRANSDERMAL SYSTEM [Suspect]
     Indication: BACK PAIN
     Dosage: 25 UG;EVERY HOUR;TRANSDERMAL
     Route: 062
     Dates: start: 20080620, end: 20080621
  2. NICODERM [Suspect]
     Indication: NICOTINE DEPENDENCE
     Dosage: TRANSDERMAL
     Route: 062
     Dates: start: 20080613, end: 20080620
  3. ASPIRIN [Concomitant]
  4. COMBIVENT [Concomitant]
  5. CALCIUM [Concomitant]
  6. FOLIC ACID [Concomitant]
  7. LIPITOR [Concomitant]
  8. ALTACE [Concomitant]
  9. LEVOTHYROXINE SODIUM [Concomitant]
  10. MELOXICAM [Concomitant]
  11. LEXAPRO [Concomitant]
  12. ALPRAZOLAM [Concomitant]
  13. CENTRUM [Concomitant]

REACTIONS (1)
  - DEHYDRATION [None]
